FAERS Safety Report 9231556 (Version 1)
Quarter: 2013Q2

REPORT INFORMATION
  Report Type: Other
  Country: US (occurrence: NO)
  Receive Date: 20130415
  Receipt Date: 20130415
  Transmission Date: 20140414
  Serious: Yes (Hospitalization)
  Sender: FDA-Public Use
  Company Number: NO-BRISTOL-MYERS SQUIBB COMPANY-18757765

PATIENT
  Age: 29 Year
  Sex: Male
  Weight: 80 kg

DRUGS (6)
  1. CISPLATIN [Suspect]
     Indication: METASTATIC MALIGNANT MELANOMA
     Dosage: 25 MG/M2
  2. CARMUSTINE [Interacting]
     Indication: METASTATIC MALIGNANT MELANOMA
     Dosage: 150 MG/M2
  3. DACARBAZINE [Interacting]
     Indication: METASTATIC MALIGNANT MELANOMA
     Dosage: 220 MG/M2
  4. TAMOXIFEN [Interacting]
     Indication: METASTATIC MALIGNANT MELANOMA
     Route: 048
  5. PHENYTOIN [Interacting]
     Indication: CONVULSION
     Route: 048
  6. DEXAMETHASONE [Interacting]
     Indication: BRAIN OEDEMA
     Route: 048

REACTIONS (3)
  - Drug interaction [Unknown]
  - Drug level decreased [Unknown]
  - Convulsion [Unknown]
